FAERS Safety Report 10173803 (Version 1)
Quarter: 2014Q2

REPORT INFORMATION
  Report Type: Spontaneous
  Country: JP (occurrence: None)
  Receive Date: 20140513
  Receipt Date: 20140513
  Transmission Date: 20141212
  Serious: Yes (Other)
  Sender: FDA-Public Use
  Company Number: 2014P1003800

PATIENT
  Age: 33 Year
  Sex: Female

DRUGS (1)
  1. HEPARIN [Suspect]
     Route: 042

REACTIONS (7)
  - Exposure during pregnancy [None]
  - Dyspnoea [None]
  - Pulmonary congestion [None]
  - Cardiac valve replacement complication [None]
  - Device malfunction [None]
  - Heparin-induced thrombocytopenia [None]
  - Abortion induced [None]
